FAERS Safety Report 6853903-2 (Version None)
Quarter: 2010Q3

REPORT INFORMATION
  Report Type: 
  Country: None (occurrence: None)
  Receive Date: 20100717
  Receipt Date: 20071220
  Transmission Date: 20110219
  Serious: No
  Sender: FDA-Public Use
  Company Number: US-PFIZER INC-2007108276

PATIENT
  Sex: Male

DRUGS (16)
  1. CHANTIX [Suspect]
     Indication: SMOKING CESSATION THERAPY
     Dates: start: 20070101
  2. PROTONIX [Concomitant]
  3. FLEXERIL [Concomitant]
  4. DOXEPIN HCL [Concomitant]
  5. COREG [Concomitant]
  6. GLYBURIDE [Concomitant]
  7. LOVASTATIN [Concomitant]
  8. ACTOS [Concomitant]
  9. METFORMIN HCL [Concomitant]
  10. CARTIA XT [Concomitant]
  11. TRICOR [Concomitant]
  12. PROZAC [Concomitant]
  13. DILAUDID [Concomitant]
  14. ANDROGEL [Concomitant]
  15. NITROGLYCERIN [Concomitant]
  16. DIAZEPAM [Concomitant]

REACTIONS (2)
  - BLOOD GLUCOSE INCREASED [None]
  - NAUSEA [None]
